FAERS Safety Report 7803338 (Version 4)
Quarter: 2014Q1

REPORT INFORMATION
  Report Type: Spontaneous
  Country: US (occurrence: US)
  Receive Date: 20110208
  Receipt Date: 20140115
  Transmission Date: 20141002
  Serious: Yes (Hospitalization)
  Sender: FDA-Public Use
  Company Number: US-BAYER-2011-011462

PATIENT
  Age: 19 Year
  Sex: Female
  Weight: 57.14 kg

DRUGS (9)
  1. YAZ [Suspect]
     Indication: ACNE
     Dosage: UNK
     Dates: start: 200705, end: 200807
  2. YAZ [Suspect]
     Indication: PREMENSTRUAL SYNDROME
     Dosage: UNK
     Dates: start: 200505, end: 200807
  3. YASMIN [Suspect]
     Indication: ACNE
     Dosage: UNK
     Dates: start: 200512, end: 200705
  4. YASMIN [Suspect]
     Indication: PREMENSTRUAL SYNDROME
     Dosage: UNK
     Dates: start: 200512, end: 200705
  5. DEPAKOTE [Concomitant]
  6. PREVACID [Concomitant]
  7. IBUPROFEN [Concomitant]
     Indication: ANALGESIC THERAPY
     Dosage: UNK UNK, PRN
     Dates: start: 200709
  8. ZEGERID [Concomitant]
     Indication: HYPERCHLORHYDRIA
     Dosage: UNK UNK, PRN
     Dates: start: 200709
  9. SUCRALFATE [Concomitant]
     Indication: HYPERCHLORHYDRIA
     Dosage: UNK UNK, PRN
     Dates: start: 200709

REACTIONS (4)
  - Cholecystitis [None]
  - Cholelithiasis [None]
  - Injury [None]
  - Pain [None]
